FAERS Safety Report 12130654 (Version 1)
Quarter: 2016Q1

REPORT INFORMATION
  Report Type: Spontaneous
  Country: US (occurrence: None)
  Receive Date: 20160229
  Receipt Date: 20160229
  Transmission Date: 20160526
  Serious: Yes (Other)
  Sender: FDA-Public Use
  Company Number: None

PATIENT
  Age: 6 Year
  Sex: Male
  Weight: 21.77 kg

DRUGS (1)
  1. VERDESO [Suspect]
     Active Substance: DESONIDE
     Indication: ECZEMA
     Dosage: 100 GM TWICE DAILY  APPLIED TO A SURFACE, USUALLY THE SKIN
     Dates: start: 20160215, end: 20160218

REACTIONS (1)
  - Dysphemia [None]

NARRATIVE: CASE EVENT DATE: 20160220
